FAERS Safety Report 12627099 (Version 1)
Quarter: 2016Q3

REPORT INFORMATION
  Report Type: Spontaneous
  Country: US (occurrence: US)
  Receive Date: 20160805
  Receipt Date: 20160805
  Transmission Date: 20161109
  Serious: No
  Sender: FDA-Public Use
  Company Number: US-009507513-1608USA002997

PATIENT
  Sex: Male
  Weight: 61.22 kg

DRUGS (1)
  1. CELESTONE [Suspect]
     Active Substance: BETAMETHASONE

REACTIONS (1)
  - Drug hypersensitivity [Unknown]
